FAERS Safety Report 25461715 (Version 1)
Quarter: 2025Q2

REPORT INFORMATION
  Report Type: Spontaneous
  Country: CN (occurrence: CN)
  Receive Date: 20250620
  Receipt Date: 20250620
  Transmission Date: 20250717
  Serious: Yes (Hospitalization, Other)
  Sender: Haleon PLC
  Company Number: CN-HALEON-2247987

PATIENT
  Age: 77 Year
  Sex: Male

DRUGS (2)
  1. IBUPROFEN [Suspect]
     Active Substance: IBUPROFEN
     Indication: Analgesic therapy
     Route: 048
     Dates: start: 20250603, end: 20250613
  2. ASPIRIN [Suspect]
     Active Substance: ASPIRIN
     Indication: Platelet disorder
     Dosage: DOSE FORM: ENTERIC-COATED TABLETS
     Route: 048
     Dates: start: 20250415, end: 20250613

REACTIONS (11)
  - Melaena [Recovering/Resolving]
  - Condition aggravated [Recovering/Resolving]
  - Wrong technique in product usage process [Unknown]
  - Haemorrhage subcutaneous [Recovering/Resolving]
  - Asthenia [Recovering/Resolving]
  - Dizziness [Recovering/Resolving]
  - Ecchymosis [Recovering/Resolving]
  - Prothrombin time prolonged [Recovering/Resolving]
  - Oedema peripheral [Recovering/Resolving]
  - Face oedema [Recovering/Resolving]
  - Gastrointestinal haemorrhage [Recovering/Resolving]

NARRATIVE: CASE EVENT DATE: 20250603
